FAERS Safety Report 18119945 (Version 2)
Quarter: 2022Q1

REPORT INFORMATION
  Report Type: Other
  Country: US (occurrence: None)
  Receive Date: 20200806
  Receipt Date: 20220313
  Transmission Date: 20220424
  Serious: Yes (Hospitalization, Other)
  Sender: FDA-Public Use
  Company Number: US-ROCHE-2653767

PATIENT
  Sex: Male
  Weight: 112.59 kg

DRUGS (21)
  1. OCREVUS [Suspect]
     Active Substance: OCRELIZUMAB
     Indication: Primary progressive multiple sclerosis
     Dosage: ONGOING YES
     Route: 042
     Dates: start: 201611
  2. OCREVUS [Suspect]
     Active Substance: OCRELIZUMAB
     Dosage: ONGOING: YES, DISPENSE 2
     Route: 042
     Dates: start: 20200505
  3. ASPIRIN [Concomitant]
     Active Substance: ASPIRIN
  4. DOXAZOSIN [Concomitant]
     Active Substance: DOXAZOSIN MESYLATE
  5. DULOXETINE [Concomitant]
     Active Substance: DULOXETINE
  6. EXCEDRIN MIGRAINE [Concomitant]
     Active Substance: ACETAMINOPHEN\ASPIRIN\CAFFEINE
  7. EZETIMIBE [Concomitant]
     Active Substance: EZETIMIBE
  8. FLUTICASONE [Concomitant]
     Active Substance: FLUTICASONE
  9. FUROSEMIDE [Concomitant]
     Active Substance: FUROSEMIDE
  10. GUAIFENESIN [Concomitant]
     Active Substance: GUAIFENESIN
  11. PALIPERIDONE [Concomitant]
     Active Substance: PALIPERIDONE
  12. JARDIANCE [Concomitant]
     Active Substance: EMPAGLIFLOZIN
  13. LOSARTAN [Concomitant]
     Active Substance: LOSARTAN
  14. METOPROLOL SUCCINATE [Concomitant]
     Active Substance: METOPROLOL SUCCINATE
  15. PROAIR RESPICLICK [Concomitant]
     Active Substance: ALBUTEROL SULFATE
  16. PRAZOSIN [Concomitant]
     Active Substance: PRAZOSIN
  17. SYMBICORT [Concomitant]
     Active Substance: BUDESONIDE\FORMOTEROL FUMARATE DIHYDRATE
  18. TOPAMAX [Concomitant]
     Active Substance: TOPIRAMATE
  19. TRESIBA [Concomitant]
     Active Substance: INSULIN DEGLUDEC
  20. LORATADINE [Concomitant]
     Active Substance: LORATADINE
  21. BUPROPION [Concomitant]
     Active Substance: BUPROPION

REACTIONS (4)
  - Irritability [Unknown]
  - Gastric ulcer [Unknown]
  - Pancreatitis [Unknown]
  - Tremor [Not Recovered/Not Resolved]
